FAERS Safety Report 6761873-0 (Version None)
Quarter: 2010Q2

REPORT INFORMATION
  Report Type: 
  Country: None (occurrence: None)
  Receive Date: 20100609
  Receipt Date: 20100609
  Transmission Date: 20101027
  Serious: Yes (Other)
  Sender: FDA-Public Use
  Company Number: None

PATIENT
  Age: 5 Year
  Sex: Female
  Weight: 20.4119 kg

DRUGS (2)
  1. ZYRTEC [Suspect]
     Dosage: BEFORE ED VISIT
  2. TYLENOL MCNEILL [Suspect]
     Dosage: BEFORE ED VISIT

REACTIONS (2)
  - HAEMATEMESIS [None]
  - PRODUCT QUALITY ISSUE [None]
